FAERS Safety Report 8309050-6 (Version None)
Quarter: 2012Q2

REPORT INFORMATION
  Report Type: 
  Country: None (occurrence: None)
  Receive Date: 20120424
  Receipt Date: 20120416
  Transmission Date: 20120825
  Serious: Yes (Hospitalization, Other)
  Sender: FDA-Public Use
  Company Number: TH-ELI_LILLY_AND_COMPANY-TH201107003911

PATIENT
  Sex: Male

DRUGS (11)
  1. SAXAGLIPTIN [Concomitant]
     Indication: TYPE 2 DIABETES MELLITUS
     Dosage: UNK
     Dates: start: 20110309, end: 20110825
  2. PLACEBO [Concomitant]
  3. HUMULIN N [Suspect]
     Indication: TYPE 2 DIABETES MELLITUS
     Dosage: 30 IU, UNK
     Route: 065
  4. ASPIRIN [Concomitant]
     Dosage: UNK
  5. HMG COA REDUCTASE INHIBITORS [Concomitant]
     Dosage: UNK
  6. DIURETICS [Concomitant]
     Dosage: UNK
  7. ALDOSTERONE ANTAGONISTS [Concomitant]
     Dosage: UNK
  8. PIOGLITAZONE HYDROCHLORIDE [Concomitant]
     Indication: TYPE 2 DIABETES MELLITUS
     Dosage: 15 MG, UNK
     Dates: start: 20111229
  9. HUMULIN R [Suspect]
     Indication: TYPE 2 DIABETES MELLITUS
     Dosage: 12 IU, UNK
     Route: 065
  10. BETA BLOCKING AGENTS [Concomitant]
     Dosage: UNK
  11. NITROGLYCERIN [Concomitant]
     Dosage: UNK

REACTIONS (8)
  - ANGINA UNSTABLE [None]
  - CHEST DISCOMFORT [None]
  - PRESYNCOPE [None]
  - ACUTE MYOCARDIAL INFARCTION [None]
  - HYPOGLYCAEMIA [None]
  - ISCHAEMIC CARDIOMYOPATHY [None]
  - DIZZINESS [None]
  - CONGESTIVE CARDIOMYOPATHY [None]
